FAERS Safety Report 12836648 (Version 1)
Quarter: 2016Q4

REPORT INFORMATION
  Report Type: Spontaneous
  Country: US (occurrence: US)
  Receive Date: 20161011
  Receipt Date: 20161011
  Transmission Date: 20170207
  Serious: Yes (Hospitalization)
  Sender: FDA-Public Use
  Company Number: None

PATIENT
  Age: 77 Year
  Sex: Female
  Weight: 111.13 kg

DRUGS (7)
  1. LISINOPRIL. [Concomitant]
     Active Substance: LISINOPRIL
  2. CALCITROL [Concomitant]
     Active Substance: CALCITRIOL
  3. WARFARIN [Concomitant]
     Active Substance: WARFARIN
  4. MESTINON [Concomitant]
     Active Substance: PYRIDOSTIGMINE BROMIDE
  5. ANDRIX 599 240MG DILTIAZEM ER (CD) 240/ 24 CAP WAT [Suspect]
     Active Substance: DILTIAZEM
     Indication: HYPERTENSION
     Route: 048
     Dates: start: 20160904, end: 20160909
  6. LASIX [Concomitant]
     Active Substance: FUROSEMIDE
  7. DILTIAZEM. [Concomitant]
     Active Substance: DILTIAZEM

REACTIONS (2)
  - Blood pressure fluctuation [None]
  - Heart rate irregular [None]
